FAERS Safety Report 24707071 (Version 1)
Quarter: 2024Q4

REPORT INFORMATION
  Report Type: Spontaneous
  Country: US (occurrence: US)
  Receive Date: 20241206
  Receipt Date: 20241206
  Transmission Date: 20250114
  Serious: Yes (Other)
  Sender: DR REDDYS
  Company Number: US-DRL-USA-LIT/USA/24/0017787

PATIENT
  Age: 17 Year
  Sex: Male

DRUGS (29)
  1. CLONIDINE [Suspect]
     Active Substance: CLONIDINE
     Indication: Dystonia
     Dosage: 0.7 MG PER DAY VIA TRANSDERMAL PATCH 100 ?G EVERY 6 H AS NEEDED
  2. CLONIDINE [Suspect]
     Active Substance: CLONIDINE
     Dosage: 0.6 MG PER DAY VIA TRANSDERMAL PATCH 100 ?G EVERY 6 H AS NEEDED
  3. CARBIDOPA\LEVODOPA [Suspect]
     Active Substance: CARBIDOPA\LEVODOPA
     Indication: Dystonia
  4. CLONIDINE [Concomitant]
     Active Substance: CLONIDINE
     Indication: Dystonia
     Dosage: 100 ?G BY JEJUNOSTOMY TUBE EVERY 6 HOURS
     Route: 042
  5. CLONIDINE [Concomitant]
     Active Substance: CLONIDINE
     Dosage: 0.6 MG PER DAY
  6. OXYCODONE [Concomitant]
     Active Substance: OXYCODONE
     Indication: Dystonia
     Dosage: 0.8 MG EVERY 8 H (DOSAGE BEFORE DEXMEDETOMIDINE)
  7. OXYCODONE [Concomitant]
     Active Substance: OXYCODONE
     Dosage: 2 MG EVERY 8 H AND 1 MG EVERY 4 H AS NEEDED (DOSAGE AFTER DEXMEDETOMIDINE)
  8. RISPERIDONE [Concomitant]
     Active Substance: RISPERIDONE
     Indication: Dystonia
     Dosage: 0.75 MG AT BEDTIME WITH 0.75 MG DAILY AS NEEDED, SPACED AT LEAST?6 H FROM BEDTIME DOSE
  9. RISPERIDONE [Concomitant]
     Active Substance: RISPERIDONE
     Indication: Agitation
  10. RISPERIDONE [Concomitant]
     Active Substance: RISPERIDONE
     Indication: Delirium
  11. CHLORZOXAZONE [Concomitant]
     Active Substance: CHLORZOXAZONE
     Indication: Dystonia
  12. BACLOFEN [Concomitant]
     Active Substance: BACLOFEN
     Indication: Cerebral palsy
     Dosage: 40 MG Q 6 H (DOSAGE BEFORE DEXMEDETOMIDINE)
  13. BACLOFEN [Concomitant]
     Active Substance: BACLOFEN
     Dosage: 40 MG Q 8 H (DOSAGE AFTER DEXMEDETOMIDINE)
  14. CANNABIDIOL [Concomitant]
     Active Substance: CANNABIDIOL
     Indication: Dystonia
     Dosage: MORNING: 8 MG?MIDDAY: 4 MG?MIDDAY AS NEEDED: 4 MG?NIGHT: 16 MG?(DOSAGE BEFORE AND AFTER DEXMEDETOMID
  15. CANNABIDIOL [Concomitant]
     Active Substance: CANNABIDIOL
     Dosage: 68 MG PER J TUBE EVERY 12 H (MAXIMUM MEDICATION DOSE PRESCRIBED DURING INPATIENT ADMISSION TO TREAT
  16. Tetrahydro-cannabinol [Concomitant]
     Indication: Dystonia
     Dosage: MORNING: 8.75 MG?MIDDAY: 4.38 MG?MIDDAY AS NEEDED: 4.38 MG?NIGHT: 17.5 MG?(DOSAGE BEFORE AND AFTER D
  17. DANTROLENE [Concomitant]
     Active Substance: DANTROLENE
     Indication: Dystonia
     Dosage: 100 MG EVERY 6 H (DOSAGE BEFORE DEXMEDETOMIDINE)
  18. DANTROLENE [Concomitant]
     Active Substance: DANTROLENE
     Dosage: 100 MG 3 TIMES DAILY (DOSAGE AFTER DEXMEDETOMIDINE)
  19. DANTROLENE [Concomitant]
     Active Substance: DANTROLENE
     Dosage: 1.4 ?G/KG/H INTRAVENOUS CONTINUOUS?1.0 ?G/KG/H INTRAVENOUS EVERY 2 H BOLUS AS NEEDED?MAXIMUM MEDICAT
  20. DIAZEPAM [Concomitant]
     Active Substance: DIAZEPAM
     Indication: Dystonia
     Dosage: 9 MG EVERY 6 H AND 3 MG EVERY 6 H AS NEEDED (DOSAGE BEFORE DEXMEDETOMIDINE)
  21. DIAZEPAM [Concomitant]
     Active Substance: DIAZEPAM
     Dosage: 7.5 MG EVERY 6 H AND 3 MG EVERY 6 H AS NEEDED (DOSAGE AFTER DEXMEDETOMIDINE)
  22. DIAZEPAM [Concomitant]
     Active Substance: DIAZEPAM
     Dosage: 5 MG INTRAVENOUS EVERY 6 H?MAXIMUM MEDICATION DOSE PRESCRIBED DURING INPATIENT ADMISSION TO TREAT ME
  23. GABAPENTIN [Concomitant]
     Active Substance: GABAPENTIN
     Indication: Dystonia
     Dosage: 800 MG 3 TIMES DAILY (DOSAGE BEFORE DEXMEDETOMIDINE)
  24. MAGNESIUM HYDROXIDE [Concomitant]
     Active Substance: MAGNESIUM HYDROXIDE
     Indication: Dystonia
     Dosage: 600 MG EVERY 8 H (DOSAGE BEFORE AND AFTER DEXMEDETOMIDINE)
  25. TRIHEXYPHENIDYL [Concomitant]
     Active Substance: TRIHEXYPHENIDYL
     Indication: Dystonia
     Dosage: 4 MG 3 TIMES DAILY (DOSAGE BEFORE DEXMEDETOMIDINE)
  26. TRIHEXYPHENIDYL [Concomitant]
     Active Substance: TRIHEXYPHENIDYL
     Dosage: 3.2 MG 3 TIMES DAILY (DOSAGE AFTER DEXMEDETOMIDINE)
  27. ONABOTULINUMTOXINA [Concomitant]
     Active Substance: ONABOTULINUMTOXINA
     Indication: Dystonia
  28. DEXMEDETOMIDINE [Concomitant]
     Active Substance: DEXMEDETOMIDINE
     Indication: Dystonia
     Dosage: 0.5 ?G/KG/H (DOSING WEIGHT 41.5 KG; RECOMMENDED?DOSING 0.2-2 ?G/KG/H)
  29. DEXMEDETOMIDINE [Concomitant]
     Active Substance: DEXMEDETOMIDINE
     Dosage: 1.4 ?G/KG/H INTRAVENOUS CONTINUOUS?1.0 ?G/KG/H INTRAVENOUS EVERY 2 H BOLUS AS NEEDED?MAXIMUM MEDICAT

REACTIONS (2)
  - Drug ineffective for unapproved indication [Unknown]
  - Lethargy [Unknown]
